FAERS Safety Report 7385950-9 (Version None)
Quarter: 2011Q1

REPORT INFORMATION
  Report Type: 
  Country: None (occurrence: None)
  Receive Date: 20110331
  Receipt Date: 20110321
  Transmission Date: 20110831
  Serious: Yes (Hospitalization)
  Sender: FDA-Public Use
  Company Number: AU-JNJFOC-20101000042

PATIENT
  Sex: Female
  Weight: 79 kg

DRUGS (20)
  1. GREEN TEA [Concomitant]
     Indication: ROUTINE HEALTH MAINTENANCE
     Route: 065
  2. DRUGS FOR FUNCTIONAL GASTROINTEST. DISORDERS [Concomitant]
     Indication: PROPHYLAXIS
     Route: 065
  3. LOVAZA [Concomitant]
     Indication: ROUTINE HEALTH MAINTENANCE
     Route: 065
  4. LOVAZA [Concomitant]
     Indication: PROPHYLAXIS
     Route: 065
  5. OESTRACLEAR [Concomitant]
     Indication: ROUTINE HEALTH MAINTENANCE
     Route: 065
  6. ERGOCALCIFEROL [Concomitant]
     Indication: ROUTINE HEALTH MAINTENANCE
     Route: 065
  7. WILDFLOWER TABLETS [Concomitant]
     Indication: ROUTINE HEALTH MAINTENANCE
     Route: 065
  8. RESVERATROL [Concomitant]
     Indication: CARDIAC DISORDER
     Route: 065
  9. RESVERATROL [Concomitant]
     Indication: NEOPLASM PROPHYLAXIS
     Route: 065
  10. IRBESARTAN [Concomitant]
     Indication: HYPERTENSION
     Route: 065
  11. APRICOT KERNEL [Concomitant]
     Indication: ROUTINE HEALTH MAINTENANCE
     Route: 065
  12. UBIDECARENONE [Concomitant]
     Indication: PROPHYLAXIS
     Route: 065
  13. DRUGS FOR FUNCTIONAL GASTROINTEST. DISORDERS [Concomitant]
     Indication: ROUTINE HEALTH MAINTENANCE
     Route: 065
  14. DULOXETINE [Concomitant]
     Indication: DEPRESSION
     Route: 065
  15. CAELYX [Suspect]
     Indication: OVARIAN CANCER
     Route: 042
  16. QUETIAPINE [Concomitant]
     Indication: SLEEP DISORDER
     Route: 065
  17. GREEN TEA [Concomitant]
     Indication: PROPHYLAXIS
     Route: 065
  18. DEFENCE COMPLETE [Concomitant]
     Indication: ROUTINE HEALTH MAINTENANCE
     Route: 065
  19. CAELYX [Suspect]
     Route: 042
  20. LERCANIDIPINE [Concomitant]
     Indication: HYPERTENSION
     Route: 065

REACTIONS (2)
  - HYPERSENSITIVITY [None]
  - MYOCARDIAL INFARCTION [None]
